FAERS Safety Report 17152026 (Version 7)
Quarter: 2020Q2

REPORT INFORMATION
  Report Type: Spontaneous
  Country: US (occurrence: US)
  Receive Date: 20191213
  Receipt Date: 20200514
  Transmission Date: 20200713
  Serious: No
  Sender: FDA-Public Use
  Company Number: US-VERTEX PHARMACEUTICALS-2019-012360

PATIENT
  Age: 30 Year
  Sex: Female
  Weight: 41 kg

DRUGS (11)
  1. AMBIEN [Concomitant]
     Active Substance: ZOLPIDEM TARTRATE
     Dosage: UNK
  2. CREON [Concomitant]
     Active Substance: PANCRELIPASE AMYLASE\PANCRELIPASE LIPASE\PANCRELIPASE PROTEASE
     Dosage: UNK
  3. COLISTIMETHATE [COLISTIMETHATE SODIUM] [Concomitant]
     Active Substance: COLISTIMETHATE SODIUM
     Dosage: UNK
  4. LEVALBUTEROL [LEVOSALBUTAMOL] [Concomitant]
     Active Substance: LEVALBUTEROL
     Dosage: UNK
  5. NOXAFIL [Concomitant]
     Active Substance: POSACONAZOLE
     Dosage: UNK
  6. TRIKAFTA [Suspect]
     Active Substance: ELEXACAFTOR\IVACAFTOR\TEZACAFTOR
     Dosage: 2 TABLETS (100MG ELEXACAFTOR/ 50MG TEZACAFTOR/ 75MG IVACAFTOR)AM; 1 TABLET (150MG IVACAFTOR) PM, BID
     Route: 048
     Dates: start: 20191214
  7. ADDERALL [Concomitant]
     Active Substance: AMPHETAMINE ASPARTATE\AMPHETAMINE SULFATE\DEXTROAMPHETAMINE SACCHARATE\DEXTROAMPHETAMINE SULFATE
     Dosage: UNK
  8. TOBRAMYCIN [TOBRAMYCIN SULFATE] [Concomitant]
     Active Substance: TOBRAMYCIN SULFATE
     Dosage: UNK
  9. SODIUM CHLORIDE. [Concomitant]
     Active Substance: SODIUM CHLORIDE
  10. TRIKAFTA [Suspect]
     Active Substance: ELEXACAFTOR\IVACAFTOR\TEZACAFTOR
     Indication: CYSTIC FIBROSIS
     Dosage: REDUCED DOSE OF 2 ORANGE TABLETS TWICE WEEKLY ON TUESDAYS AND FRIDAYS
     Route: 048
     Dates: start: 20191119
  11. AZITHROMYCIN ANHYDROUS. [Concomitant]
     Active Substance: AZITHROMYCIN ANHYDROUS
     Dosage: 500 MG 3X/WEEK

REACTIONS (9)
  - Acne [Unknown]
  - Sinusitis [Unknown]
  - Gastrointestinal disorder [Unknown]
  - Dysphonia [Unknown]
  - Haemoptysis [Not Recovered/Not Resolved]
  - Sinus congestion [Not Recovered/Not Resolved]
  - Vision blurred [Not Recovered/Not Resolved]
  - Product dose omission [Unknown]
  - Malaise [Unknown]

NARRATIVE: CASE EVENT DATE: 201911
